FAERS Safety Report 7579244-6 (Version None)
Quarter: 2011Q2

REPORT INFORMATION
  Report Type: 
  Country: None (occurrence: None)
  Receive Date: 20110628
  Receipt Date: 20110616
  Transmission Date: 20111010
  Serious: Yes (Other)
  Sender: FDA-Public Use
  Company Number: JP-SANOFI-AVENTIS-2011SA040002

PATIENT

DRUGS (5)
  1. OXALIPLATIN [Suspect]
     Indication: COLORECTAL CANCER METASTATIC
     Route: 065
  2. BEVACIZUMAB [Suspect]
     Indication: COLORECTAL CANCER METASTATIC
     Route: 065
  3. FLUOROURACIL [Suspect]
     Dosage: CONTINUOUS INFUSION OF 46 HOURS.
     Route: 042
  4. LEUCOVORIN CALCIUM [Suspect]
     Indication: COLORECTAL CANCER METASTATIC
     Route: 065
  5. FLUOROURACIL [Suspect]
     Indication: COLORECTAL CANCER METASTATIC
     Route: 042

REACTIONS (3)
  - CEREBRAL INFARCTION [None]
  - NEUTROPENIA [None]
  - PERIPHERAL SENSORY NEUROPATHY [None]
